FAERS Safety Report 5669676-5 (Version None)
Quarter: 2008Q1

REPORT INFORMATION
  Report Type: 
  Country: None (occurrence: None)
  Receive Date: 20080312
  Receipt Date: 20080312
  Transmission Date: 20080703
  Serious: Yes (Other)
  Sender: FDA-Public Use
  Company Number: None

PATIENT
  Sex: Female

DRUGS (2)
  1. OPTIRAY 320 [Suspect]
     Indication: ABDOMEN SCAN
  2. OPTIRAY 320 [Suspect]
     Indication: SCAN WITH CONTRAST

REACTIONS (4)
  - HYPOAESTHESIA [None]
  - SNEEZING [None]
  - SWELLING FACE [None]
  - URTICARIA [None]
